FAERS Safety Report 16721429 (Version 1)
Quarter: 2019Q3

REPORT INFORMATION
  Report Type: Spontaneous
  Country: US (occurrence: US)
  Receive Date: 20190820
  Receipt Date: 20190820
  Transmission Date: 20191005
  Serious: No
  Sender: FDA-Public Use
  Company Number: US-TEVA-2019-US-1096921

PATIENT
  Sex: Male

DRUGS (2)
  1. SORIATANE [Suspect]
     Active Substance: ACITRETIN
     Indication: PRODUCT USED FOR UNKNOWN INDICATION
     Dosage: 10 MILLIGRAM DAILY;
     Route: 065
     Dates: start: 2016
  2. SORIATANE [Suspect]
     Active Substance: ACITRETIN
     Dosage: 25 MILLIGRAM DAILY;
     Route: 065
     Dates: start: 20170512

REACTIONS (4)
  - Rash [Unknown]
  - Infection [Unknown]
  - Dermatitis infected [Unknown]
  - Product dose omission [Unknown]
